FAERS Safety Report 5934380-2 (Version None)
Quarter: 2008Q4

REPORT INFORMATION
  Report Type: 
  Country: None (occurrence: None)
  Receive Date: 20081029
  Receipt Date: 20081022
  Transmission Date: 20090506
  Serious: Yes (Death, Other)
  Sender: FDA-Public Use
  Company Number: PHHY2008AR25631

PATIENT
  Sex: Female

DRUGS (1)
  1. EXELON [Suspect]
     Indication: VASCULAR DEMENTIA
     Dosage: UNK
     Dates: start: 20070101

REACTIONS (4)
  - CARDIO-RESPIRATORY ARREST [None]
  - GAIT DISTURBANCE [None]
  - GENERAL PHYSICAL HEALTH DETERIORATION [None]
  - URINARY INCONTINENCE [None]
